FAERS Safety Report 4383745-1 (Version None)
Quarter: 2004Q2

REPORT INFORMATION
  Report Type: 
  Country: None (occurrence: None)
  Receive Date: 20040608
  Receipt Date: 20030628
  Transmission Date: 20050107
  Serious: Yes (Other)
  Sender: FDA-Public Use
  Company Number: 200312220BCC

PATIENT
  Age: 3 Year
  Sex: Female
  Weight: 9.5255 kg

DRUGS (1)
  1. ALEVE [Suspect]
     Dosage: 1100 MG, ONCE, ORAL
     Route: 048
     Dates: start: 20030628

REACTIONS (1)
  - NO ADVERSE DRUG EFFECT [None]
